FAERS Safety Report 12555366 (Version 1)
Quarter: 2016Q3

REPORT INFORMATION
  Report Type: Spontaneous
  Country: US (occurrence: US)
  Receive Date: 20160714
  Receipt Date: 20160714
  Transmission Date: 20161109
  Serious: Yes (Other)
  Sender: FDA-Public Use
  Company Number: US-STRIDES ARCOLAB LIMITED-2016SP009510

PATIENT

DRUGS (2)
  1. IBUPROFEN. [Suspect]
     Active Substance: IBUPROFEN
     Dosage: 3200 MG, DAILY
     Route: 048
  2. IBUPROFEN. [Suspect]
     Active Substance: IBUPROFEN
     Indication: HEADACHE
     Dosage: UNK

REACTIONS (11)
  - Overdose [Unknown]
  - Blood lactate dehydrogenase increased [Recovered/Resolved]
  - Nausea [Unknown]
  - Evans syndrome [Recovered/Resolved]
  - Haemolytic anaemia [Unknown]
  - Tubulointerstitial nephritis [Recovered/Resolved]
  - Thrombotic thrombocytopenic purpura [Unknown]
  - Vomiting [Unknown]
  - Thrombocytopenia [Recovered/Resolved]
  - Abdominal pain [Unknown]
  - Acute kidney injury [Unknown]
